FAERS Safety Report 25964520 (Version 2)
Quarter: 2025Q4

REPORT INFORMATION
  Report Type: Report from Study
  Country: US (occurrence: US)
  Receive Date: 20251027
  Receipt Date: 20251107
  Transmission Date: 20260117
  Serious: No
  Sender: MALLINCKRODT
  Company Number: US-MALLINCKRODT-MNK202506285

PATIENT
  Sex: Female

DRUGS (2)
  1. CORTICOTROPIN [Suspect]
     Active Substance: CORTICOTROPIN
     Indication: Rheumatoid arthritis
     Dosage: UNKNOWN
  2. CORTICOTROPIN [Suspect]
     Active Substance: CORTICOTROPIN
     Dosage: UNKNOWN

REACTIONS (6)
  - Nausea [Unknown]
  - Limb injury [Not Recovered/Not Resolved]
  - Rash [Recovered/Resolved]
  - Hypertension [Unknown]
  - Peripheral swelling [Recovered/Resolved]
  - Depression [Unknown]
